FAERS Safety Report 21373391 (Version 1)
Quarter: 2022Q3

REPORT INFORMATION
  Report Type: Other
  Country: TW (occurrence: None)
  Receive Date: 20220925
  Receipt Date: 20220925
  Transmission Date: 20221027
  Serious: Yes (Other)
  Sender: FDA-Public Use
  Company Number: TW-ROCHE-2911265

PATIENT
  Age: 45 Year
  Sex: Female

DRUGS (2)
  1. RITUXIMAB [Suspect]
     Active Substance: RITUXIMAB
     Indication: Undifferentiated connective tissue disease
     Dosage: TWO 500-MG ADMINISTERED 2 WEEKS APART
     Route: 042
  2. RITUXIMAB [Suspect]
     Active Substance: RITUXIMAB
     Indication: Antiphospholipid syndrome

REACTIONS (3)
  - Hepatitis B [Recovered/Resolved]
  - Fatigue [Recovered/Resolved]
  - Off label use [Unknown]
